FAERS Safety Report 9800068 (Version 2)
Quarter: 2015Q3

REPORT INFORMATION
  Report Type: Spontaneous
  Country: US (occurrence: US)
  Receive Date: 20140106
  Receipt Date: 20150806
  Transmission Date: 20151125
  Serious: No
  Sender: FDA-Public Use
  Company Number: US-GILEAD-2010-0032173

PATIENT
  Age: 74 Year
  Sex: Female
  Weight: 47.63 kg

DRUGS (14)
  1. METOLAZONE. [Concomitant]
     Active Substance: METOLAZONE
  2. VISINE EYE DROPS [Concomitant]
     Active Substance: TETRAHYDROZOLINE HYDROCHLORIDE
  3. PREDNISONE. [Concomitant]
     Active Substance: PREDNISONE
  4. ASPIRIN. [Concomitant]
     Active Substance: ASPIRIN
  5. NIFEDIAC CC [Concomitant]
     Active Substance: NIFEDIPINE
  6. OXYGEN. [Concomitant]
     Active Substance: OXYGEN
  7. REMODULIN [Concomitant]
     Active Substance: TREPROSTINIL
  8. KLOR-CON [Concomitant]
     Active Substance: POTASSIUM CHLORIDE
  9. LETAIRIS [Suspect]
     Active Substance: AMBRISENTAN
     Indication: PULMONARY ARTERIAL HYPERTENSION
     Route: 048
     Dates: start: 20090326
  10. ALEVE [Concomitant]
     Active Substance: NAPROXEN SODIUM
  11. LOVASTATIN. [Concomitant]
     Active Substance: LOVASTATIN
  12. FUROSEMIDE. [Concomitant]
     Active Substance: FUROSEMIDE
  13. OMEPRAZOLE. [Concomitant]
     Active Substance: OMEPRAZOLE
  14. LEVOXYL [Concomitant]
     Active Substance: LEVOTHYROXINE SODIUM

REACTIONS (1)
  - Dizziness [Unknown]
